FAERS Safety Report 15775623 (Version 7)
Quarter: 2022Q4

REPORT INFORMATION
  Report Type: Other
  Country: US (occurrence: None)
  Receive Date: 20181231
  Receipt Date: 20221115
  Transmission Date: 20230112
  Serious: Yes (Hospitalization, Other)
  Sender: FDA-Public Use
  Company Number: US-ROCHE-2234638

PATIENT
  Age: 68 Year
  Sex: Female
  Weight: 68.100 kg

DRUGS (12)
  1. OCREVUS [Suspect]
     Active Substance: OCRELIZUMAB
     Indication: Relapsing multiple sclerosis
     Dosage: 300 MG ON DAY 1 AND DAY 15 THEN 600 MG EVERY 6 MONTHS?DATE OF TREATMENT: 15/FEB/2018, 01/MAR/2018, 2
     Route: 042
     Dates: start: 201603
  2. OCREVUS [Suspect]
     Active Substance: OCRELIZUMAB
     Indication: Relapsing-remitting multiple sclerosis
     Dosage: RE-START OCREVUS THERAPY
     Route: 042
     Dates: start: 20200320
  3. OCREVUS [Suspect]
     Active Substance: OCRELIZUMAB
     Indication: Secondary progressive multiple sclerosis
     Route: 042
     Dates: start: 201802
  4. DIAZEPAM [Concomitant]
     Active Substance: DIAZEPAM
     Dosage: ONGOING: YES
     Route: 048
  5. COMPAZINE [Concomitant]
     Active Substance: PROCHLORPERAZINE MALEATE
     Indication: Nausea
     Dosage: ONGOING: YES
     Route: 048
  6. NEXIUM [Concomitant]
     Active Substance: ESOMEPRAZOLE MAGNESIUM
     Indication: Gastrooesophageal reflux disease
     Route: 048
  7. LISINOPRIL [Concomitant]
     Active Substance: LISINOPRIL
     Indication: Hypertension
     Dosage: ONGOING YES
     Route: 048
  8. BACTRIM [Concomitant]
     Active Substance: SULFAMETHOXAZOLE\TRIMETHOPRIM
     Dosage: ONGOING YES
     Route: 048
  9. BOTOX [Concomitant]
     Active Substance: ONABOTULINUMTOXINA
     Indication: Hypertonic bladder
     Dates: start: 2013, end: 201302
  10. HYDROCODONE [Concomitant]
     Active Substance: HYDROCODONE
     Indication: Pain
     Dosage: 10-235 MG
     Route: 048
  11. AMLODIPINE [Concomitant]
     Active Substance: AMLODIPINE BESYLATE
     Indication: Hypertension
  12. VITAMIN C [Concomitant]
     Active Substance: ASCORBIC ACID

REACTIONS (22)
  - Urinary tract infection [Recovered/Resolved]
  - Sepsis [Recovered/Resolved]
  - Hemiparesis [Unknown]
  - Gait disturbance [Unknown]
  - Asthenia [Not Recovered/Not Resolved]
  - Muscular weakness [Unknown]
  - Fall [Unknown]
  - Urine odour abnormal [Not Recovered/Not Resolved]
  - Urine abnormality [Not Recovered/Not Resolved]
  - Pyrexia [Not Recovered/Not Resolved]
  - Product monitoring error [Unknown]
  - Fatigue [Recovered/Resolved]
  - Nausea [Recovered/Resolved]
  - Decreased immune responsiveness [Recovered/Resolved]
  - Off label use [Unknown]
  - Ill-defined disorder [Unknown]
  - Pyrexia [Recovered/Resolved]
  - Haemorrhage [Unknown]
  - Thrombosis [Unknown]
  - Cystitis noninfective [Not Recovered/Not Resolved]
  - Ureterolithiasis [Recovered/Resolved]
  - Nephrolithiasis [Not Recovered/Not Resolved]

NARRATIVE: CASE EVENT DATE: 20180215
